FAERS Safety Report 4566331-X (Version None)
Quarter: 2005Q1

REPORT INFORMATION
  Report Type: 
  Country: None (occurrence: None)
  Receive Date: 20050128
  Receipt Date: 20050114
  Transmission Date: 20050727
  Serious: Yes (Other)
  Sender: FDA-Public Use
  Company Number: 2005-UK-00068UK

PATIENT
  Age: 76 Year
  Sex: Female

DRUGS (5)
  1. PERSANTIN [Suspect]
     Indication: CEREBROVASCULAR ACCIDENT PROPHYLAXIS
     Dosage: 200 MG (DAILY), PO
     Route: 048
     Dates: start: 20041102, end: 20041230
  2. PERINDOPRIL (PERINDOPRIL) [Concomitant]
  3. DOXAZOSIN MESYLATE [Concomitant]
  4. BENDROFLUAZIDE (BENDROFLUMETHIAZIDE) [Concomitant]
  5. CLOPIDOGREL (CLLOPIDOGREL) [Concomitant]

REACTIONS (3)
  - ABDOMINAL PAIN [None]
  - EPISTAXIS [None]
  - RECTAL HAEMORRHAGE [None]
